FAERS Safety Report 18953086 (Version 4)
Quarter: 2024Q2

REPORT INFORMATION
  Report Type: Report from Study
  Country: AU (occurrence: AU)
  Receive Date: 20210301
  Receipt Date: 20240604
  Transmission Date: 20240716
  Serious: Yes (Other)
  Sender: FDA-Public Use
  Company Number: AU-JNJFOC-20210247111

PATIENT
  Age: 23 Year
  Sex: Female

DRUGS (1)
  1. REMICADE [Suspect]
     Active Substance: INFLIXIMAB
     Indication: Crohn^s disease
     Route: 041

REACTIONS (3)
  - Intestinal resection [Recovering/Resolving]
  - Appendicectomy [Recovering/Resolving]
  - Gastrointestinal infection [Unknown]

NARRATIVE: CASE EVENT DATE: 20210201
